FAERS Safety Report 8548721-3 (Version None)
Quarter: 2012Q3

REPORT INFORMATION
  Report Type: 
  Country: None (occurrence: None)
  Receive Date: 20120730
  Receipt Date: 20120723
  Transmission Date: 20120928
  Serious: Yes (Hospitalization, Other)
  Sender: FDA-Public Use
  Company Number: PHHY2011JP82244

PATIENT
  Sex: Male
  Weight: 70 kg

DRUGS (9)
  1. LOXONIN [Suspect]
     Indication: CANCER PAIN
     Dosage: 120 MG, UNK
     Route: 048
     Dates: start: 20070101, end: 20100908
  2. ZOMETA [Suspect]
     Dosage: 3.3 MG, QW
     Route: 041
     Dates: start: 20100701, end: 20100908
  3. CASODEX [Concomitant]
     Indication: PROSTATE CANCER
     Dosage: 80 MG, UNK
     Route: 048
  4. ATELEC [Concomitant]
     Indication: HYPERTENSION
     Dosage: 10 MG, UNK
     Route: 048
     Dates: start: 20100916
  5. OXYCONTIN [Concomitant]
     Indication: CANCER PAIN
     Dosage: 20 MG, UNK
     Route: 048
     Dates: start: 20070101
  6. CANDESARTAN CILEXETIL [Concomitant]
     Indication: HYPERTENSION
     Dosage: 8 MG, UNK
     Route: 048
     Dates: start: 20090709, end: 20100316
  7. CANDESARTAN CILEXETIL AND HYDROCHLOROTHIAZIDE [Suspect]
     Indication: HYPERTENSION
     Dosage: 1 DF, UNK
     Route: 048
     Dates: start: 20100317, end: 20100908
  8. ZOMETA [Suspect]
     Indication: METASTASES TO BONE
     Dosage: 4 MG, WEEKLY
     Route: 041
     Dates: start: 20070601, end: 20100701
  9. LEUPROLIDE ACETATE [Concomitant]
     Indication: PROSTATE CANCER
     Route: 041
     Dates: start: 20070901

REACTIONS (10)
  - KIDNEY FIBROSIS [None]
  - RENAL FUNCTION TEST ABNORMAL [None]
  - RENAL INJURY [None]
  - RENAL TUBULAR DISORDER [None]
  - RENAL TUBULAR ATROPHY [None]
  - BLOOD UREA INCREASED [None]
  - RENAL TUBULAR NECROSIS [None]
  - BLOOD CREATININE INCREASED [None]
  - HYPOKALAEMIA [None]
  - HYPOPHOSPHATAEMIA [None]
